FAERS Safety Report 9027078 (Version 1)
Quarter: 2013Q1

REPORT INFORMATION
  Report Type: Spontaneous
  Country: US (occurrence: US)
  Receive Date: 20130123
  Receipt Date: 20130123
  Transmission Date: 20140127
  Serious: No
  Sender: FDA-Public Use
  Company Number: US-PFIZER INC-2013022799

PATIENT
  Age: 60 Year
  Sex: Male
  Weight: 117.91 kg

DRUGS (1)
  1. VIAGRA [Suspect]
     Indication: ERECTILE DYSFUNCTION
     Dosage: 50 MG, AS NEEDED
     Route: 048
     Dates: start: 2005, end: 201301

REACTIONS (2)
  - Drug ineffective [Unknown]
  - Product taste abnormal [Unknown]
